FAERS Safety Report 5184872-1 (Version None)
Quarter: 2006Q4

REPORT INFORMATION
  Report Type: 
  Country: None (occurrence: None)
  Receive Date: 20061220
  Receipt Date: 20060503
  Transmission Date: 20070319
  Serious: No
  Sender: FDA-Public Use
  Company Number: US-GLAXOSMITHKLINE-A0604147A

PATIENT
  Age: 30 Year
  Sex: Male

DRUGS (7)
  1. NICODERM CQ [Suspect]
     Dates: end: 20060503
  2. DEPAKOTE [Concomitant]
  3. ZONEGRAN [Concomitant]
  4. CLONAZEPAM [Concomitant]
  5. ACIPHEX [Concomitant]
  6. DOXAZOSIN MESYLATE [Concomitant]
  7. CYMBALTA [Concomitant]

REACTIONS (2)
  - HYPERHIDROSIS [None]
  - SKIN ODOUR ABNORMAL [None]
